FAERS Safety Report 9592351 (Version 1)
Quarter: 2013Q3

REPORT INFORMATION
  Report Type: Spontaneous
  Country: US (occurrence: None)
  Receive Date: 20130923
  Receipt Date: 20130923
  Transmission Date: 20140515
  Serious: Yes (Other)
  Sender: FDA-Public Use
  Company Number: KV201200230

PATIENT
  Age: 51 Year
  Sex: Female
  Weight: 50.8 kg

DRUGS (8)
  1. EVAMIST [Suspect]
     Indication: PRODUCT USED FOR UNKNOWN INDICATION
     Route: 062
  2. PROGESTERONE [Suspect]
  3. PROGESTERONE [Suspect]
  4. PREMARIN [Suspect]
  5. PREMARIN [Suspect]
  6. HUMIRA (ADALIMUMAB) OPEN LABEL [Suspect]
  7. HUMIRA (ADALIMUMAB) OPEN LABEL [Suspect]
  8. HUMIRA (ADALIMUMAB) OPEN LABEL [Suspect]
     Indication: OFF LABEL USE

REACTIONS (2)
  - Breast cancer in situ [None]
  - Off label use [None]
